FAERS Safety Report 7032218-6 (Version None)
Quarter: 2010Q4

REPORT INFORMATION
  Report Type: 
  Country: None (occurrence: None)
  Receive Date: 20101007
  Receipt Date: 20100225
  Transmission Date: 20110411
  Serious: Yes (Other)
  Sender: FDA-Public Use
  Company Number: US-BRISTOL-MYERS SQUIBB COMPANY-14997381

PATIENT
  Age: 32 Year
  Sex: Male

DRUGS (1)
  1. CETUXIMAB [Suspect]
     Indication: THYMOMA
     Dosage: LAST PROTOCOL TREATMENT:27-JAN-10
     Dates: start: 20091222

REACTIONS (2)
  - CHEST PAIN [None]
  - DRY SKIN [None]
